FAERS Safety Report 25147104 (Version 2)
Quarter: 2025Q2

REPORT INFORMATION
  Report Type: Spontaneous
  Country: CA (occurrence: CA)
  Receive Date: 20250401
  Receipt Date: 20250512
  Transmission Date: 20250716
  Serious: Yes (Life-Threatening, Hospitalization, Disabling, Other)
  Sender: ALEXION PHARMACEUTICALS
  Company Number: CA-HALEON-2229824

PATIENT
  Age: 65 Year
  Weight: 69 kg

DRUGS (228)
  1. NEXIUM [Suspect]
     Active Substance: ESOMEPRAZOLE MAGNESIUM
  2. NEXIUM [Suspect]
     Active Substance: ESOMEPRAZOLE MAGNESIUM
  3. NEXIUM [Suspect]
     Active Substance: ESOMEPRAZOLE MAGNESIUM
  4. CANDESARTAN CILEXETIL [Suspect]
     Active Substance: CANDESARTAN CILEXETIL
     Dosage: 150 MILLIGRAM, QD
  5. CANDESARTAN CILEXETIL [Suspect]
     Active Substance: CANDESARTAN CILEXETIL
     Dosage: 150 MILLIGRAM, QD
  6. CANDESARTAN CILEXETIL [Suspect]
     Active Substance: CANDESARTAN CILEXETIL
     Dosage: 150 MILLIGRAM, QD
  7. ATACAND [Suspect]
     Active Substance: CANDESARTAN CILEXETIL
  8. NEXIUM [Suspect]
     Active Substance: ESOMEPRAZOLE MAGNESIUM
  9. NEXIUM [Suspect]
     Active Substance: ESOMEPRAZOLE MAGNESIUM
  10. NEXIUM [Suspect]
     Active Substance: ESOMEPRAZOLE MAGNESIUM
  11. NEXIUM [Suspect]
     Active Substance: ESOMEPRAZOLE MAGNESIUM
  12. NEXIUM [Suspect]
     Active Substance: ESOMEPRAZOLE MAGNESIUM
  13. NEXIUM [Suspect]
     Active Substance: ESOMEPRAZOLE MAGNESIUM
  14. NEXIUM [Suspect]
     Active Substance: ESOMEPRAZOLE MAGNESIUM
  15. NEXIUM [Suspect]
     Active Substance: ESOMEPRAZOLE MAGNESIUM
  16. LISINOPRIL [Suspect]
     Active Substance: LISINOPRIL
  17. LISINOPRIL [Suspect]
     Active Substance: LISINOPRIL
  18. LISINOPRIL [Suspect]
     Active Substance: LISINOPRIL
  19. LISINOPRIL [Suspect]
     Active Substance: LISINOPRIL
  20. GLICLAZIDE [Suspect]
     Active Substance: GLICLAZIDE
     Indication: Diabetes mellitus
     Route: 065
  21. GLICLAZIDE [Suspect]
     Active Substance: GLICLAZIDE
     Indication: Blood pressure measurement
     Route: 065
  22. GLICLAZIDE [Suspect]
     Active Substance: GLICLAZIDE
     Route: 065
  23. GLICLAZIDE [Suspect]
     Active Substance: GLICLAZIDE
     Route: 065
  24. GLICLAZIDE [Suspect]
     Active Substance: GLICLAZIDE
     Route: 065
  25. GLICLAZIDE [Suspect]
     Active Substance: GLICLAZIDE
     Route: 065
  26. GLICLAZIDE [Suspect]
     Active Substance: GLICLAZIDE
     Route: 065
  27. GLICLAZIDE [Suspect]
     Active Substance: GLICLAZIDE
     Route: 065
  28. GLICLAZIDE [Suspect]
     Active Substance: GLICLAZIDE
     Route: 065
  29. GLICLAZIDE [Suspect]
     Active Substance: GLICLAZIDE
     Route: 065
  30. CALCIUM CARBONATE [Suspect]
     Active Substance: CALCIUM CARBONATE
     Indication: Product used for unknown indication
     Dosage: 20 MILLIGRAM, QD
     Route: 065
  31. CALCIUM CARBONATE [Suspect]
     Active Substance: CALCIUM CARBONATE
     Dosage: 20 MILLIGRAM, QD
  32. CALCIUM CARBONATE [Suspect]
     Active Substance: CALCIUM CARBONATE
     Dosage: 20 MILLIGRAM, QD
     Route: 065
  33. CALCIUM CARBONATE [Suspect]
     Active Substance: CALCIUM CARBONATE
     Dosage: 20 MILLIGRAM, QD
  34. ONDANSETRON [Suspect]
     Active Substance: ONDANSETRON
     Indication: Product used for unknown indication
  35. ONDANSETRON [Suspect]
     Active Substance: ONDANSETRON
     Route: 065
  36. ACETAMINOPHEN [Suspect]
     Active Substance: ACETAMINOPHEN
     Indication: Arthritis
     Dosage: 650 MILLIGRAM, QD
  37. ACETAMINOPHEN [Suspect]
     Active Substance: ACETAMINOPHEN
     Dosage: 650 MILLIGRAM, QD
  38. ACETAMINOPHEN [Suspect]
     Active Substance: ACETAMINOPHEN
     Dosage: 650 MILLIGRAM, QD
  39. ACETAMINOPHEN [Suspect]
     Active Substance: ACETAMINOPHEN
     Dosage: 650 MILLIGRAM, QD
  40. METHOTREXATE [Suspect]
     Active Substance: METHOTREXATE
     Indication: Product used for unknown indication
  41. METHOTREXATE [Suspect]
     Active Substance: METHOTREXATE
  42. METHOTREXATE [Suspect]
     Active Substance: METHOTREXATE
  43. METHOTREXATE [Suspect]
     Active Substance: METHOTREXATE
  44. METHOTREXATE [Suspect]
     Active Substance: METHOTREXATE
  45. METHOTREXATE [Suspect]
     Active Substance: METHOTREXATE
  46. ASPIRIN [Suspect]
     Active Substance: ASPIRIN
     Indication: Product used for unknown indication
  47. ASPIRIN [Suspect]
     Active Substance: ASPIRIN
  48. ASPIRIN [Suspect]
     Active Substance: ASPIRIN
     Dosage: 1 DOSAGE FORM, QD
  49. ASPIRIN [Suspect]
     Active Substance: ASPIRIN
  50. ASPIRIN [Suspect]
     Active Substance: ASPIRIN
  51. ASPIRIN [Suspect]
     Active Substance: ASPIRIN
  52. ASPIRIN [Suspect]
     Active Substance: ASPIRIN
  53. ASPIRIN [Suspect]
     Active Substance: ASPIRIN
     Dosage: 1 DOSAGE FORM, QD
  54. ASPIRIN [Suspect]
     Active Substance: ASPIRIN
     Dosage: 81 MILLIGRAM, QD
  55. MORPHINE [Suspect]
     Active Substance: MORPHINE
     Indication: Product used for unknown indication
  56. RITUXIMAB [Suspect]
     Active Substance: RITUXIMAB
     Indication: Sjogren^s syndrome
  57. RITUXIMAB [Suspect]
     Active Substance: RITUXIMAB
     Indication: Rheumatoid arthritis
  58. RITUXIMAB [Suspect]
     Active Substance: RITUXIMAB
  59. RITUXIMAB [Suspect]
     Active Substance: RITUXIMAB
  60. RITUXIMAB [Suspect]
     Active Substance: RITUXIMAB
  61. RITUXIMAB [Suspect]
     Active Substance: RITUXIMAB
  62. AMLODIPINE [Suspect]
     Active Substance: AMLODIPINE BESYLATE
     Indication: Product used for unknown indication
     Dosage: 5 MILLIGRAM, QD
  63. AMLODIPINE [Suspect]
     Active Substance: AMLODIPINE BESYLATE
  64. AMLODIPINE [Suspect]
     Active Substance: AMLODIPINE BESYLATE
  65. AMLODIPINE [Suspect]
     Active Substance: AMLODIPINE BESYLATE
     Dosage: 5 MILLIGRAM, QD
  66. AMLODIPINE [Suspect]
     Active Substance: AMLODIPINE BESYLATE
     Dosage: 5 MILLIGRAM, QD
  67. AMLODIPINE [Suspect]
     Active Substance: AMLODIPINE BESYLATE
     Dosage: 5 MILLIGRAM, QD
  68. AMLODIPINE [Suspect]
     Active Substance: AMLODIPINE BESYLATE
     Dosage: 5 MILLIGRAM, QD
  69. AMLODIPINE [Suspect]
     Active Substance: AMLODIPINE BESYLATE
     Dosage: 5 MILLIGRAM, QD
  70. AMLODIPINE [Suspect]
     Active Substance: AMLODIPINE BESYLATE
  71. AMLODIPINE [Suspect]
     Active Substance: AMLODIPINE BESYLATE
     Dosage: 5 MILLIGRAM, QD
  72. AMLODIPINE [Suspect]
     Active Substance: AMLODIPINE BESYLATE
     Dosage: 5 MILLIGRAM, QD
  73. AMLODIPINE [Suspect]
     Active Substance: AMLODIPINE BESYLATE
     Dosage: 5 MILLIGRAM, QD
  74. AMLODIPINE [Suspect]
     Active Substance: AMLODIPINE BESYLATE
     Dosage: 5 MILLIGRAM, QD
  75. ALTACE [Suspect]
     Active Substance: RAMIPRIL
     Indication: Product used for unknown indication
  76. ALTACE [Suspect]
     Active Substance: RAMIPRIL
  77. RAMIPRIL [Suspect]
     Active Substance: RAMIPRIL
     Indication: Product used for unknown indication
  78. RAMIPRIL [Suspect]
     Active Substance: RAMIPRIL
  79. RAMIPRIL [Suspect]
     Active Substance: RAMIPRIL
  80. RAMIPRIL [Suspect]
     Active Substance: RAMIPRIL
  81. SYNTHROID [Suspect]
     Active Substance: LEVOTHYROXINE SODIUM
     Indication: Product used for unknown indication
  82. SYNTHROID [Suspect]
     Active Substance: LEVOTHYROXINE SODIUM
  83. SYNTHROID [Suspect]
     Active Substance: LEVOTHYROXINE SODIUM
  84. DIPHENHYDRAMINE [Suspect]
     Active Substance: DIPHENHYDRAMINE
     Indication: Premedication
     Dosage: 50 MILLIGRAM, QD
  85. DIPHENHYDRAMINE [Suspect]
     Active Substance: DIPHENHYDRAMINE
     Dosage: 50 MILLIGRAM, QD
  86. LIPITOR [Suspect]
     Active Substance: ATORVASTATIN CALCIUM
     Indication: Product used for unknown indication
     Dosage: 20 MILLIGRAM, QD
  87. LIPITOR [Suspect]
     Active Substance: ATORVASTATIN CALCIUM
     Dosage: 20 MILLIGRAM, QD
  88. METFORMIN [Suspect]
     Active Substance: METFORMIN HYDROCHLORIDE
     Indication: Product used for unknown indication
     Dosage: 850 MILLIGRAM, TID
  89. METFORMIN [Suspect]
     Active Substance: METFORMIN HYDROCHLORIDE
  90. METFORMIN [Suspect]
     Active Substance: METFORMIN HYDROCHLORIDE
  91. METFORMIN [Suspect]
     Active Substance: METFORMIN HYDROCHLORIDE
     Dosage: 850 MILLIGRAM, TID
  92. METFORMIN [Suspect]
     Active Substance: METFORMIN HYDROCHLORIDE
     Dosage: 850 MILLIGRAM, TID
  93. METFORMIN [Suspect]
     Active Substance: METFORMIN HYDROCHLORIDE
     Dosage: 850 MILLIGRAM, TID
  94. METFORMIN [Suspect]
     Active Substance: METFORMIN HYDROCHLORIDE
  95. PREDNISONE [Suspect]
     Active Substance: PREDNISONE
     Indication: Product used for unknown indication
  96. PREDNISONE [Suspect]
     Active Substance: PREDNISONE
  97. PREDNISONE [Suspect]
     Active Substance: PREDNISONE
  98. PREDNISONE [Suspect]
     Active Substance: PREDNISONE
  99. ZOLPIDEM [Suspect]
     Active Substance: ZOLPIDEM TARTRATE
     Indication: Product used for unknown indication
  100. ZOLPIDEM [Suspect]
     Active Substance: ZOLPIDEM TARTRATE
  101. ZOLPIDEM [Suspect]
     Active Substance: ZOLPIDEM TARTRATE
  102. ALISKIREN HEMIFUMARATE [Concomitant]
     Active Substance: ALISKIREN HEMIFUMARATE
     Indication: Microalbuminuria
     Dosage: 150 MILLIGRAM, QD
  103. ALISKIREN HEMIFUMARATE [Concomitant]
     Active Substance: ALISKIREN HEMIFUMARATE
     Indication: Hypertension
     Dosage: 300 MILLIGRAM, QD
  104. ALISKIREN HEMIFUMARATE [Concomitant]
     Active Substance: ALISKIREN HEMIFUMARATE
     Indication: Off label use
  105. ALISKIREN HEMIFUMARATE [Concomitant]
     Active Substance: ALISKIREN HEMIFUMARATE
     Dosage: 150 MILLIGRAM, QD
  106. ALISKIREN HEMIFUMARATE [Concomitant]
     Active Substance: ALISKIREN HEMIFUMARATE
     Dosage: 300 MILLIGRAM, QD
  107. ALISKIREN HEMIFUMARATE [Concomitant]
     Active Substance: ALISKIREN HEMIFUMARATE
     Dosage: 300 MILLIGRAM, QD
  108. ALISKIREN HEMIFUMARATE [Concomitant]
     Active Substance: ALISKIREN HEMIFUMARATE
  109. ALISKIREN HEMIFUMARATE [Concomitant]
     Active Substance: ALISKIREN HEMIFUMARATE
     Dosage: 150 MILLIGRAM, QD
  110. ALISKIREN HEMIFUMARATE [Concomitant]
     Active Substance: ALISKIREN HEMIFUMARATE
     Dosage: 300 MILLIGRAM, QD
  111. Diamicron [Concomitant]
     Indication: Diabetes mellitus
  112. Diamicron [Concomitant]
     Indication: Blood pressure measurement
  113. Diamicron [Concomitant]
  114. Diamicron [Concomitant]
  115. Diamicron [Concomitant]
  116. Diamicron [Concomitant]
  117. Diamicron [Concomitant]
  118. Diamicron [Concomitant]
  119. Diamicron [Concomitant]
  120. Diamicron [Concomitant]
  121. Diamicron [Concomitant]
  122. METHYLPREDNISOLONE SODIUM SUCCINATE [Concomitant]
     Active Substance: METHYLPREDNISOLONE SODIUM SUCCINATE
     Indication: Premedication
     Dosage: 100 MILLIGRAM, QD
  123. METHYLPREDNISOLONE SODIUM SUCCINATE [Concomitant]
     Active Substance: METHYLPREDNISOLONE SODIUM SUCCINATE
     Dosage: 100 MILLIGRAM, QD
  124. BISOPROLOL [Concomitant]
     Active Substance: BISOPROLOL
     Indication: Product used for unknown indication
  125. BISOPROLOL [Concomitant]
     Active Substance: BISOPROLOL
  126. BISOPROLOL [Concomitant]
     Active Substance: BISOPROLOL
  127. BISOPROLOL [Concomitant]
     Active Substance: BISOPROLOL
  128. BISOPROLOL [Concomitant]
     Active Substance: BISOPROLOL
  129. BISOPROLOL [Concomitant]
     Active Substance: BISOPROLOL
  130. BISOPROLOL [Concomitant]
     Active Substance: BISOPROLOL
  131. COSENTYX [Concomitant]
     Active Substance: SECUKINUMAB
     Indication: Psoriatic arthropathy
  132. COSENTYX [Concomitant]
     Active Substance: SECUKINUMAB
     Indication: Psoriasis
  133. COSENTYX [Concomitant]
     Active Substance: SECUKINUMAB
     Indication: Hypertension
  134. COSENTYX [Concomitant]
     Active Substance: SECUKINUMAB
  135. COSENTYX [Concomitant]
     Active Substance: SECUKINUMAB
     Dosage: 300 MILLIGRAM, MONTHLY
  136. COSENTYX [Concomitant]
     Active Substance: SECUKINUMAB
     Dosage: 30 MILLIGRAM, 1/WEEK
  137. COSENTYX [Concomitant]
     Active Substance: SECUKINUMAB
  138. COSENTYX [Concomitant]
     Active Substance: SECUKINUMAB
  139. COSENTYX [Concomitant]
     Active Substance: SECUKINUMAB
  140. COSENTYX [Concomitant]
     Active Substance: SECUKINUMAB
  141. COSENTYX [Concomitant]
     Active Substance: SECUKINUMAB
  142. COSENTYX [Concomitant]
     Active Substance: SECUKINUMAB
  143. COSENTYX [Concomitant]
     Active Substance: SECUKINUMAB
     Dosage: 30 MILLIGRAM, MONTHLY
  144. COSENTYX [Concomitant]
     Active Substance: SECUKINUMAB
     Dosage: 300 MILLIGRAM, MONTHLY
  145. COSENTYX [Concomitant]
     Active Substance: SECUKINUMAB
  146. COSENTYX [Concomitant]
     Active Substance: SECUKINUMAB
  147. COSENTYX [Concomitant]
     Active Substance: SECUKINUMAB
  148. COSENTYX [Concomitant]
     Active Substance: SECUKINUMAB
  149. COSENTYX [Concomitant]
     Active Substance: SECUKINUMAB
  150. COSENTYX [Concomitant]
     Active Substance: SECUKINUMAB
  151. ERGOCALCIFEROL [Concomitant]
     Active Substance: ERGOCALCIFEROL
     Indication: Product used for unknown indication
  152. ERGOCALCIFEROL [Concomitant]
     Active Substance: ERGOCALCIFEROL
  153. ERGOCALCIFEROL [Concomitant]
     Active Substance: ERGOCALCIFEROL
  154. MORPHINE SULFATE [Concomitant]
     Active Substance: MORPHINE SULFATE
     Indication: Product used for unknown indication
  155. MORPHINE SULFATE [Concomitant]
     Active Substance: MORPHINE SULFATE
  156. MORPHINE SULFATE [Concomitant]
     Active Substance: MORPHINE SULFATE
  157. MORPHINE SULFATE [Concomitant]
     Active Substance: MORPHINE SULFATE
  158. IRBESARTAN [Concomitant]
     Active Substance: IRBESARTAN
     Indication: Hypertension
  159. IRBESARTAN [Concomitant]
     Active Substance: IRBESARTAN
     Dosage: 1 DOSAGE FORM, QD
  160. IRBESARTAN [Concomitant]
     Active Substance: IRBESARTAN
     Dosage: 300 MILLIGRAM, QD
  161. IRBESARTAN [Concomitant]
     Active Substance: IRBESARTAN
     Dosage: 1 DOSAGE FORM, QD
  162. IRBESARTAN [Concomitant]
     Active Substance: IRBESARTAN
     Dosage: 300 MILLIGRAM, QD
  163. IRBESARTAN [Concomitant]
     Active Substance: IRBESARTAN
  164. IRBESARTAN [Concomitant]
     Active Substance: IRBESARTAN
  165. IRBESARTAN [Concomitant]
     Active Substance: IRBESARTAN
  166. IRBESARTAN [Concomitant]
     Active Substance: IRBESARTAN
  167. IRBESARTAN [Concomitant]
     Active Substance: IRBESARTAN
  168. IRBESARTAN [Concomitant]
     Active Substance: IRBESARTAN
     Dosage: 1 DOSAGE FORM, QD
  169. IRBESARTAN [Concomitant]
     Active Substance: IRBESARTAN
     Dosage: 1 DOSAGE FORM, QD
  170. IRBESARTAN [Concomitant]
     Active Substance: IRBESARTAN
     Dosage: 300 MILLIGRAM, QD
  171. IRBESARTAN [Concomitant]
     Active Substance: IRBESARTAN
     Dosage: 300 MILLIGRAM, QD
  172. IRBESARTAN [Concomitant]
     Active Substance: IRBESARTAN
     Dosage: 1 DOSAGE FORM, QD
  173. IRBESARTAN [Concomitant]
     Active Substance: IRBESARTAN
     Dosage: 1 DOSAGE FORM, QD
  174. IRBESARTAN [Concomitant]
     Active Substance: IRBESARTAN
     Dosage: 1 DOSAGE FORM, QD
  175. IRBESARTAN [Concomitant]
     Active Substance: IRBESARTAN
     Dosage: 1 DOSAGE FORM, QD
  176. IRBESARTAN [Concomitant]
     Active Substance: IRBESARTAN
     Dosage: 300 MILLIGRAM, QD
  177. IRBESARTAN [Concomitant]
     Active Substance: IRBESARTAN
     Dosage: 300 MILLIGRAM, QD
  178. IRBESARTAN [Concomitant]
     Active Substance: IRBESARTAN
     Dosage: 300 MILLIGRAM, QD
  179. IRBESARTAN [Concomitant]
     Active Substance: IRBESARTAN
     Dosage: 300 MILLIGRAM, QD
  180. JANUVIA [Concomitant]
     Active Substance: SITAGLIPTIN PHOSPHATE
     Indication: Product used for unknown indication
     Dosage: 100 MILLIGRAM, QD
  181. JANUVIA [Concomitant]
     Active Substance: SITAGLIPTIN PHOSPHATE
     Dosage: 100 MILLIGRAM, QD
  182. ESOMEPRAZOLE MAGNESIUM\NAPROXEN [Concomitant]
     Active Substance: ESOMEPRAZOLE MAGNESIUM\NAPROXEN
     Indication: Product used for unknown indication
  183. ESOMEPRAZOLE MAGNESIUM\NAPROXEN [Concomitant]
     Active Substance: ESOMEPRAZOLE MAGNESIUM\NAPROXEN
  184. GRAVOL [Concomitant]
     Active Substance: DIMENHYDRINATE
     Indication: Premedication
     Dosage: 100 MILLIGRAM
  185. GRAVOL [Concomitant]
     Active Substance: DIMENHYDRINATE
     Dosage: 50 MILLIGRAM, QD
  186. GRAVOL [Concomitant]
     Active Substance: DIMENHYDRINATE
     Dosage: 100 MILLIGRAM, QD
  187. PROCHLORPERAZINE [Concomitant]
     Active Substance: PROCHLORPERAZINE
     Indication: Vomiting
  188. PROCHLORPERAZINE [Concomitant]
     Active Substance: PROCHLORPERAZINE
  189. PROCHLORPERAZINE [Concomitant]
     Active Substance: PROCHLORPERAZINE
  190. PROCHLORPERAZINE [Concomitant]
     Active Substance: PROCHLORPERAZINE
  191. TUMS ULTRA [Concomitant]
     Active Substance: CALCIUM CARBONATE
     Indication: Product used for unknown indication
  192. TUMS ULTRA [Concomitant]
     Active Substance: CALCIUM CARBONATE
  193. TUMS ULTRA [Concomitant]
     Active Substance: CALCIUM CARBONATE
  194. TUMS ULTRA [Concomitant]
     Active Substance: CALCIUM CARBONATE
  195. TUMS ULTRA [Concomitant]
     Active Substance: CALCIUM CARBONATE
  196. LISINOPRIL [Concomitant]
     Active Substance: LISINOPRIL
     Indication: Hypertension
  197. NAPROXEN [Concomitant]
     Active Substance: NAPROXEN
     Indication: Product used for unknown indication
  198. NAPROXEN [Concomitant]
     Active Substance: NAPROXEN
  199. NAPROXEN [Concomitant]
     Active Substance: NAPROXEN
  200. NAPROXEN [Concomitant]
     Active Substance: NAPROXEN
  201. PEDIAPRED [Concomitant]
     Active Substance: PREDNISOLONE SODIUM PHOSPHATE
     Indication: Product used for unknown indication
  202. IRBESARTAN [Concomitant]
     Active Substance: IRBESARTAN
     Indication: Product used for unknown indication
     Dosage: 1 DOSAGE FORM, QD
  203. AMLODIPINE BESYLATE [Concomitant]
     Active Substance: AMLODIPINE BESYLATE
     Indication: Product used for unknown indication
  204. LANTUS [Concomitant]
     Active Substance: INSULIN GLARGINE
     Indication: Product used for unknown indication
  205. ACETAMINOPHEN [Concomitant]
     Active Substance: ACETAMINOPHEN
  206. ACITRETIN [Concomitant]
     Active Substance: ACITRETIN
  207. AMEVIVE [Concomitant]
     Active Substance: ALEFACEPT
  208. AVAPRO [Concomitant]
     Active Substance: IRBESARTAN
  209. COAL TAR [Concomitant]
     Active Substance: COAL TAR
  210. CYANOCOBALAMIN [Concomitant]
     Active Substance: CYANOCOBALAMIN
  211. CYMBALTA [Concomitant]
     Active Substance: DULOXETINE HYDROCHLORIDE
  212. DOMPERIDONE MALEATE [Concomitant]
     Active Substance: DOMPERIDONE MALEATE
  213. DOVONEX [Concomitant]
     Active Substance: CALCIPOTRIENE
  214. LEVOTHYROXINE [Concomitant]
     Active Substance: LEVOTHYROXINE
  215. EZETIMIBE [Concomitant]
     Active Substance: EZETIMIBE
  216. GLUCOPHAGE [Concomitant]
     Active Substance: METFORMIN HYDROCHLORIDE
  217. HUMALOG [Concomitant]
     Active Substance: INSULIN LISPRO
  218. HYDROCHLOROTHIAZIDE [Concomitant]
     Active Substance: HYDROCHLOROTHIAZIDE
  219. LEVEMIR [Concomitant]
     Active Substance: INSULIN DETEMIR
  220. LEVOTHYROXINE SODIUM [Concomitant]
     Active Substance: LEVOTHYROXINE SODIUM
  221. LYRICA [Concomitant]
     Active Substance: PREGABALIN
  222. PANTOPRAZOLE MAGNESIUM [Concomitant]
     Active Substance: PANTOPRAZOLE MAGNESIUM
  223. ROSUVASTATIN CALCIUM [Concomitant]
     Active Substance: ROSUVASTATIN CALCIUM
  224. IRBESARTAN [Concomitant]
     Active Substance: IRBESARTAN
  225. STELARA [Concomitant]
     Active Substance: USTEKINUMAB
  226. TELMISARTAN [Concomitant]
     Active Substance: TELMISARTAN
  227. TYLENOL [Concomitant]
     Active Substance: ACETAMINOPHEN
  228. ZESTRIL [Suspect]
     Active Substance: LISINOPRIL

REACTIONS (53)
  - Adjustment disorder [Not Recovered/Not Resolved]
  - Affect lability [Not Recovered/Not Resolved]
  - Angina pectoris [Not Recovered/Not Resolved]
  - Anxiety [Not Recovered/Not Resolved]
  - Aphasia [Not Recovered/Not Resolved]
  - Arterial occlusive disease [Not Recovered/Not Resolved]
  - Arthritis [Not Recovered/Not Resolved]
  - Asthenia [Recovered/Resolved]
  - Blood pressure increased [Not Recovered/Not Resolved]
  - Carotid artery thrombosis [Not Recovered/Not Resolved]
  - Cataract [Not Recovered/Not Resolved]
  - Cerebrovascular accident [Not Recovered/Not Resolved]
  - Chest discomfort [Not Recovered/Not Resolved]
  - Confusional state [Not Recovered/Not Resolved]
  - Coordination abnormal [Not Recovered/Not Resolved]
  - Cough [Not Recovered/Not Resolved]
  - Cystitis [Not Recovered/Not Resolved]
  - Dysarthria [Not Recovered/Not Resolved]
  - Dysphagia [Not Recovered/Not Resolved]
  - Eating disorder [Not Recovered/Not Resolved]
  - Fall [Not Recovered/Not Resolved]
  - Fatigue [Not Recovered/Not Resolved]
  - Gangrene [Not Recovered/Not Resolved]
  - Gastrointestinal disorder [Not Recovered/Not Resolved]
  - Headache [Not Recovered/Not Resolved]
  - Hemiparesis [Not Recovered/Not Resolved]
  - Hemiplegia [Not Recovered/Not Resolved]
  - Influenza [Not Recovered/Not Resolved]
  - Influenza like illness [Not Recovered/Not Resolved]
  - Malaise [Not Recovered/Not Resolved]
  - Motor dysfunction [Not Recovered/Not Resolved]
  - Muscle spasticity [Not Recovered/Not Resolved]
  - Muscular weakness [Not Recovered/Not Resolved]
  - Nasopharyngitis [Not Recovered/Not Resolved]
  - Nausea [Not Recovered/Not Resolved]
  - Neurologic neglect syndrome [Not Recovered/Not Resolved]
  - Pain [Not Recovered/Not Resolved]
  - Palpitations [Not Recovered/Not Resolved]
  - Personality disorder [Not Recovered/Not Resolved]
  - Pneumonia [Not Recovered/Not Resolved]
  - Psoriasis [Not Recovered/Not Resolved]
  - Pyrexia [Not Recovered/Not Resolved]
  - Respiratory tract congestion [Not Recovered/Not Resolved]
  - Rheumatoid arthritis [Not Recovered/Not Resolved]
  - Rhinorrhoea [Not Recovered/Not Resolved]
  - Sensory loss [Not Recovered/Not Resolved]
  - Sinus congestion [Not Recovered/Not Resolved]
  - Sinus disorder [Not Recovered/Not Resolved]
  - Sinusitis [Not Recovered/Not Resolved]
  - Skin exfoliation [Not Recovered/Not Resolved]
  - Skin haemorrhage [Not Recovered/Not Resolved]
  - Sneezing [Not Recovered/Not Resolved]
  - Vomiting [Not Recovered/Not Resolved]
